FAERS Safety Report 18436142 (Version 2)
Quarter: 2020Q4

REPORT INFORMATION
  Report Type: Report from Study
  Country: KR (occurrence: KR)
  Receive Date: 20201028
  Receipt Date: 20201202
  Transmission Date: 20210114
  Serious: Yes (Hospitalization, Other)
  Sender: FDA-Public Use
  Company Number: KR-TAKEDA-2020TUS043933

PATIENT
  Age: 64 Year
  Sex: Male

DRUGS (30)
  1. SEPTRIN [Concomitant]
     Active Substance: SULFAMETHOXAZOLE\TRIMETHOPRIM
     Indication: INFECTION PROPHYLAXIS
     Dosage: UNK UNK, BID
     Route: 048
     Dates: start: 20200110, end: 20200124
  2. GALVUS MET [Concomitant]
     Active Substance: METFORMIN HYDROCHLORIDE\VILDAGLIPTIN
     Dosage: UNK UNK, BID
     Route: 048
     Dates: start: 20200221
  3. LOSARTAN PLUS [Concomitant]
     Indication: HYPERTENSION
     Dosage: UNK UNK, QD
     Route: 048
     Dates: start: 20200320
  4. GALVUS MET [Concomitant]
     Active Substance: METFORMIN HYDROCHLORIDE\VILDAGLIPTIN
     Indication: DIABETES MELLITUS
     Dosage: UNK UNK, BID
     Route: 048
     Dates: start: 20200113, end: 20200124
  5. KLENZO [Concomitant]
     Indication: INFECTION PROPHYLAXIS
     Dosage: UNK UNK, QD
     Route: 065
     Dates: start: 20200114
  6. LASIX [Concomitant]
     Active Substance: FUROSEMIDE
     Indication: OEDEMA
     Dosage: 10 MILLIGRAM, QD
     Route: 042
     Dates: start: 20200114, end: 20200114
  7. SEPTRIN [Concomitant]
     Active Substance: SULFAMETHOXAZOLE\TRIMETHOPRIM
     Dosage: UNK UNK, QD
     Route: 048
     Dates: start: 20200706
  8. SODIUM BICARBONATE. [Concomitant]
     Active Substance: SODIUM BICARBONATE
     Dosage: 10 GRAM
     Route: 065
     Dates: start: 20200712
  9. DUPHALAC EASY [Concomitant]
     Active Substance: LACTULOSE
     Dosage: 15 MILLILITER, TID
     Route: 048
     Dates: start: 20200128
  10. LASIX [Concomitant]
     Active Substance: FUROSEMIDE
     Indication: PROPHYLAXIS
     Dosage: 10 MILLIGRAM
     Route: 065
  11. RYZODEG 70/30 [Concomitant]
     Active Substance: INSULIN ASPART\INSULIN DEGLUDEC
     Indication: DIABETES MELLITUS
     Dosage: UNK UNK, QD
     Route: 058
     Dates: start: 20200114, end: 20200118
  12. FLUCONAZOLE. [Concomitant]
     Active Substance: FLUCONAZOLE
     Indication: INFECTION PROPHYLAXIS
     Dosage: 50 MILLIGRAM, BID
     Route: 048
     Dates: start: 20200706, end: 20200711
  13. BANAN [Concomitant]
     Active Substance: CEFPODOXIME PROXETIL
     Indication: INFECTION PROPHYLAXIS
     Dosage: 100 MILLIGRAM, BID
     Route: 048
     Dates: start: 20200703, end: 20200709
  14. DILATREND [Concomitant]
     Active Substance: CARVEDILOL
     Indication: HYPERTENSION
     Dosage: 8 MILLIGRAM, QD
     Route: 048
     Dates: start: 20200221
  15. DUPHALAC EASY [Concomitant]
     Active Substance: LACTULOSE
     Indication: CONSTIPATION PROPHYLAXIS
     Dosage: 15 MILLILITER, TID
     Route: 048
     Dates: start: 20200113, end: 20200124
  16. PONATINIB [Suspect]
     Active Substance: PONATINIB
     Indication: ACUTE LYMPHOCYTIC LEUKAEMIA
     Dosage: 45 MILLIGRAM, QD
     Route: 048
     Dates: start: 20200114, end: 20200706
  17. HUMALOG [Concomitant]
     Active Substance: INSULIN LISPRO
     Indication: DIABETES MELLITUS
     Dosage: UNK UNK, QD
     Route: 058
     Dates: start: 20200113, end: 20200113
  18. HUMALOG [Concomitant]
     Active Substance: INSULIN LISPRO
     Dosage: UNK UNK, QD
     Route: 058
     Dates: start: 20200113, end: 20200117
  19. ISOKET [Concomitant]
     Active Substance: ISOSORBIDE DINITRATE
     Indication: CORONARY ARTERY DISEASE
     Dosage: 120 MILLIGRAM, QD
     Route: 048
     Dates: start: 20200221
  20. MAGNESIUM OXIDE. [Concomitant]
     Active Substance: MAGNESIUM OXIDE
     Indication: DYSPEPSIA
     Dosage: 500 MILLIGRAM, TID
     Route: 048
     Dates: start: 20200320
  21. CITOPCIN [CIPROFLOXACIN HYDROCHLORIDE] [Concomitant]
     Indication: INFECTION PROPHYLAXIS
     Dosage: 250 MILLIGRAM, BID
     Route: 048
     Dates: start: 20200706, end: 20200711
  22. MUCOSTA [Concomitant]
     Active Substance: REBAMIPIDE
     Indication: DYSPEPSIA
     Dosage: 100 MILLIGRAM, BID
     Route: 048
     Dates: start: 20200706, end: 20200710
  23. MUCOSTA [Concomitant]
     Active Substance: REBAMIPIDE
     Indication: PROPHYLAXIS
  24. AMLODIPINE [Concomitant]
     Active Substance: AMLODIPINE BESYLATE
     Indication: HYPERTENSION
     Dosage: 5 MILLIGRAM, QD
     Route: 048
     Dates: start: 20200110, end: 20200116
  25. DEXAMETHASONE. [Concomitant]
     Active Substance: DEXAMETHASONE
     Indication: PRE-EXISTING DISEASE
     Dosage: 10 MILLIGRAM, BID
     Route: 042
     Dates: start: 20200113, end: 20200116
  26. MAGNESIUM OXIDE. [Concomitant]
     Active Substance: MAGNESIUM OXIDE
     Indication: PROPHYLAXIS
  27. SODIUM BICARBONATE. [Concomitant]
     Active Substance: SODIUM BICARBONATE
     Indication: INFECTION PROPHYLAXIS
     Dosage: 5 GRAM
     Route: 065
     Dates: start: 20200113, end: 20200124
  28. TANTUM [Concomitant]
     Active Substance: BENZYDAMINE HYDROCHLORIDE
     Indication: INFECTION PROPHYLAXIS
     Dosage: 100 MILLILITER, TID
     Route: 065
     Dates: start: 20200113, end: 20200124
  29. DIOVAN [Concomitant]
     Active Substance: VALSARTAN
     Indication: HYPERTENSION
     Dosage: 80 MILLIGRAM, QD
     Route: 048
     Dates: start: 20200117, end: 20200124
  30. TANTUM [Concomitant]
     Active Substance: BENZYDAMINE HYDROCHLORIDE
     Dosage: 100 MILLIGRAM, TID
     Route: 065
     Dates: start: 20200712

REACTIONS (3)
  - Neutropenia [Recovered/Resolved]
  - Acute lymphocytic leukaemia recurrent [Not Recovered/Not Resolved]
  - Febrile neutropenia [Recovered/Resolved]

NARRATIVE: CASE EVENT DATE: 20200117
